FAERS Safety Report 9669978 (Version 2)
Quarter: 2013Q4

REPORT INFORMATION
  Report Type: Report from Study
  Country: BR (occurrence: BR)
  Receive Date: 20131105
  Receipt Date: 20131105
  Transmission Date: 20140711
  Serious: Yes (Hospitalization)
  Sender: FDA-Public Use
  Company Number: BR-BRISTOL-MYERS SQUIBB COMPANY-19514769

PATIENT
  Age: 75 Year
  Sex: Male

DRUGS (17)
  1. PACLITAXEL [Suspect]
     Indication: NON-SMALL CELL LUNG CANCER
     Dosage: LAST DOSE: 13SEP13
     Route: 042
     Dates: start: 20130913
  2. CARBOPLATIN [Suspect]
     Indication: NON-SMALL CELL LUNG CANCER
     Dosage: LAST DOSE:13-SEP-2013
     Route: 042
     Dates: start: 20130913
  3. BEVACIZUMAB [Suspect]
     Indication: NON-SMALL CELL LUNG CANCER
     Dosage: LAST DOSE:13-SEP-2013
     Route: 042
     Dates: start: 20130913
  4. DRAMIN [Concomitant]
     Indication: NAUSEA
     Route: 048
     Dates: start: 20130914
  5. DRAMIN [Concomitant]
     Indication: VOMITING
     Route: 048
     Dates: start: 20130914
  6. ENALAPRIL [Concomitant]
     Indication: HYPERTENSION
     Route: 048
     Dates: start: 201303
  7. SERETIDE [Concomitant]
     Indication: RESPIRATORY DISTRESS
     Route: 055
     Dates: start: 20130610
  8. SERETIDE [Concomitant]
     Indication: DYSPNOEA
     Route: 055
     Dates: start: 20130610
  9. SPIRIVA [Concomitant]
     Indication: RESPIRATORY DISTRESS
     Route: 055
     Dates: start: 20130610
  10. SPIRIVA [Concomitant]
     Indication: DYSPNOEA
     Route: 055
     Dates: start: 20130610
  11. BUSCOPAN [Concomitant]
     Indication: ABDOMINAL PAIN
     Route: 048
     Dates: start: 20130922, end: 20130924
  12. PLASIL [Concomitant]
     Route: 042
     Dates: start: 20130922, end: 20130923
  13. PANTOPRAZOLE [Concomitant]
     Route: 048
     Dates: start: 20130923
  14. CLEXANE [Concomitant]
     Indication: DEEP VEIN THROMBOSIS
     Route: 058
     Dates: start: 20130922
  15. DIPIRONE [Concomitant]
     Indication: PYREXIA
     Route: 042
     Dates: start: 20130922
  16. BEROTEC [Concomitant]
     Indication: CHRONIC OBSTRUCTIVE PULMONARY DISEASE
     Route: 055
     Dates: start: 20130925
  17. GRANULOKINE [Concomitant]
     Indication: NEUTROPENIA
     Route: 030
     Dates: start: 20130925

REACTIONS (1)
  - Febrile neutropenia [Recovered/Resolved]
